FAERS Safety Report 8449532-X (Version None)
Quarter: 2012Q2

REPORT INFORMATION
  Report Type: 
  Country: None (occurrence: None)
  Receive Date: 20120620
  Receipt Date: 20120611
  Transmission Date: 20120825
  Serious: Yes (Hospitalization)
  Sender: FDA-Public Use
  Company Number: US-BRISTOL-MYERS SQUIBB COMPANY-16677726

PATIENT
  Age: 73 Year
  Sex: Male
  Weight: 78 kg

DRUGS (16)
  1. PACLITAXEL [Suspect]
     Indication: NON-SMALL CELL LUNG CANCER
     Dates: start: 20120320
  2. AVODART [Concomitant]
  3. DEXAMETHASONE [Concomitant]
  4. CARBOPLATIN [Suspect]
     Indication: NON-SMALL CELL LUNG CANCER
     Dates: start: 20120320
  5. LORAZEPAM [Concomitant]
  6. METAMUCIL-2 [Concomitant]
  7. NITROGLYCERIN [Concomitant]
  8. ASPIRIN [Concomitant]
  9. GLIPIZIDE [Concomitant]
  10. LOPRESSOR [Concomitant]
  11. LOTREL [Concomitant]
  12. PREVACID [Concomitant]
  13. PROCHLORPERAZINE MALEATE [Concomitant]
  14. FLOMAX [Concomitant]
  15. MIRALAX [Concomitant]
  16. BUPROPION HCL [Concomitant]

REACTIONS (1)
  - CARDIAC DISORDER [None]
